FAERS Safety Report 7982452-3 (Version None)
Quarter: 2011Q4

REPORT INFORMATION
  Report Type: 
  Country: None (occurrence: None)
  Receive Date: 20111215
  Receipt Date: 20111212
  Transmission Date: 20120403
  Serious: Yes (Life-Threatening, Hospitalization, Other)
  Sender: FDA-Public Use
  Company Number: PHHY2011BR108385

PATIENT
  Sex: Female
  Weight: 70 kg

DRUGS (3)
  1. BROMAZEPAM [Concomitant]
     Indication: DEPRESSION
     Dosage: 1 DF, QD
     Route: 048
  2. VOLTAREN [Suspect]
     Dosage: 75 MG, (ONE AMPOULE OF VOLTAREN)
     Route: 042
  3. FLUOXETINE [Concomitant]
     Indication: DEPRESSION
     Dosage: 1 DF, QD
     Route: 048

REACTIONS (5)
  - FEELING ABNORMAL [None]
  - SUICIDE ATTEMPT [None]
  - CARDIO-RESPIRATORY ARREST [None]
  - MALAISE [None]
  - SYNCOPE [None]
